FAERS Safety Report 8720292 (Version 3)
Quarter: 2012Q4

REPORT INFORMATION
  Report Type: 
  Country: JP (occurrence: JP)
  Receive Date: 20120813
  Receipt Date: 20120829
  Transmission Date: 20130627
  Serious: Yes (Other)
  Sender: FDA-Public Use
  Company Number: JP-BAYER-2012-081548

PATIENT
  Age: 39 Year
  Sex: Male

DRUGS (3)
  1. AVELOX [Suspect]
     Dosage: Daily dose 400 mg
     Route: 048
     Dates: start: 20110720, end: 20110807
  2. AVELOX [Suspect]
     Dosage: Daily dose 400 mg
     Route: 048
     Dates: start: 20110818, end: 20110818
  3. AVELOX [Suspect]
     Dosage: Daily dose 400 mg
     Route: 048
     Dates: start: 20110820, end: 20110827

REACTIONS (2)
  - Drug-induced liver injury [Unknown]
  - Stevens-Johnson syndrome [Unknown]
